FAERS Safety Report 4373647-9 (Version None)
Quarter: 2004Q1

REPORT INFORMATION
  Report Type: 
  Country: None (occurrence: None)
  Receive Date: 20040305
  Receipt Date: 20031202
  Transmission Date: 20041129
  Serious: Yes (Other)
  Sender: FDA-Public Use
  Company Number: 2003UW15886

PATIENT
  Age: 67 Year
  Sex: Male

DRUGS (3)
  1. CRESTOR [Suspect]
     Dosage: 10 MG
  2. PREVACID [Concomitant]
  3. NORVASC [Concomitant]

REACTIONS (4)
  - FATIGUE [None]
  - MUSCLE CRAMP [None]
  - MUSCLE TIGHTNESS [None]
  - NIGHT CRAMPS [None]
